FAERS Safety Report 5463142-8 (Version None)
Quarter: 2007Q3

REPORT INFORMATION
  Report Type: 
  Country: None (occurrence: None)
  Receive Date: 20070920
  Receipt Date: 20070905
  Transmission Date: 20080115
  Serious: Yes (Hospitalization)
  Sender: FDA-Public Use
  Company Number: FR-ROCHE-515932

PATIENT
  Age: 70 Year
  Sex: Female

DRUGS (3)
  1. BONIVA [Suspect]
     Indication: OSTEOPOROSIS
     Dosage: THE PATIENT ONLY TOOK ONE DOSE FORM.
     Route: 048
     Dates: start: 20070619
  2. ACETAMINOPHEN [Concomitant]
  3. OROCAL [Concomitant]
     Indication: OSTEOPOROSIS

REACTIONS (3)
  - FALL [None]
  - LUMBAR VERTEBRAL FRACTURE [None]
  - VERTIGO [None]
